FAERS Safety Report 7075726-4 (Version None)
Quarter: 2010Q4

REPORT INFORMATION
  Report Type: 
  Country: None (occurrence: None)
  Receive Date: 20101101
  Receipt Date: 20101021
  Transmission Date: 20110411
  Serious: Yes (Hospitalization)
  Sender: FDA-Public Use
  Company Number: US-BIOGENIDEC-2010BI034617

PATIENT
  Age: 38 Year
  Sex: Female
  Weight: 95 kg

DRUGS (1)
  1. TYSABRI [Suspect]
     Indication: MULTIPLE SCLEROSIS
     Route: 042
     Dates: start: 20080428

REACTIONS (4)
  - ABDOMINAL PAIN UPPER [None]
  - APPENDICITIS [None]
  - DECREASED IMMUNE RESPONSIVENESS [None]
  - MULTIPLE SCLEROSIS RELAPSE [None]
